FAERS Safety Report 9688065 (Version 1)
Quarter: 2013Q4

REPORT INFORMATION
  Report Type: Spontaneous
  Country: AT (occurrence: AT)
  Receive Date: 20131114
  Receipt Date: 20131114
  Transmission Date: 20140711
  Serious: Yes (Hospitalization)
  Sender: FDA-Public Use
  Company Number: AT-VERTEX PHARMACEUTICALS INC-2013-011034

PATIENT
  Age: 8 Decade
  Sex: Female
  Weight: 75 kg

DRUGS (5)
  1. INCIVO [Suspect]
     Indication: CHRONIC HEPATITIS C
     Dates: start: 20130927
  2. PEGINTRON [Suspect]
     Indication: CHRONIC HEPATITIS C
     Dosage: 100 MG, QW
     Route: 058
     Dates: start: 20130927, end: 20131028
  3. REBETOL [Suspect]
     Indication: HEPATITIS C
     Route: 048
     Dates: start: 20130927, end: 20131028
  4. THYREX [Concomitant]
     Indication: HYPOTHYROIDISM
     Route: 048
  5. SIFROL [Concomitant]
     Indication: RESTLESS LEGS SYNDROME
     Route: 048

REACTIONS (2)
  - Pulmonary embolism [Recovered/Resolved]
  - Drug intolerance [Unknown]
